FAERS Safety Report 17193571 (Version 1)
Quarter: 2019Q4

REPORT INFORMATION
  Report Type: Spontaneous
  Country: CA (occurrence: CA)
  Receive Date: 20191223
  Receipt Date: 20191223
  Transmission Date: 20200122
  Serious: Yes (Hospitalization)
  Sender: FDA-Public Use
  Company Number: CA-ALLERGAN-1952094US

PATIENT
  Sex: Female
  Weight: 78 kg

DRUGS (5)
  1. SALOFALK [Concomitant]
     Route: 054
  2. VITAMIN B12 [Concomitant]
     Active Substance: CYANOCOBALAMIN
  3. ASACOL [Suspect]
     Active Substance: MESALAMINE
     Indication: COLITIS ULCERATIVE
     Dosage: UNK
     Route: 065
     Dates: start: 2017
  4. INFLECTRA [Concomitant]
     Active Substance: INFLIXIMAB-DYYB
     Indication: COLITIS ULCERATIVE
     Dosage: 5 MG/KG Q 0, 2, 6 WEEKS, THEN EVERY 6 WEEKS
     Route: 042
     Dates: start: 20191116
  5. PREDNISONE. [Concomitant]
     Active Substance: PREDNISONE
     Indication: COLITIS ULCERATIVE
     Dosage: 40 MG, UNK

REACTIONS (2)
  - Condition aggravated [Unknown]
  - Drug ineffective [Unknown]
